FAERS Safety Report 8464461-3 (Version None)
Quarter: 2012Q2

REPORT INFORMATION
  Report Type: 
  Country: None (occurrence: None)
  Receive Date: 20120626
  Receipt Date: 20120618
  Transmission Date: 20120825
  Serious: Yes (Hospitalization)
  Sender: FDA-Public Use
  Company Number: DE-UCBSA-049473

PATIENT
  Sex: Male
  Weight: 90 kg

DRUGS (2)
  1. CIMZIA [Suspect]
     Dosage: NO OF DOSES RECEIVED: 1
     Route: 058
     Dates: start: 20120118, end: 20120201
  2. CIMZIA [Suspect]
     Indication: RHEUMATOID ARTHRITIS
     Dosage: 3X400 MG
     Route: 058
     Dates: start: 20111123, end: 20111219

REACTIONS (2)
  - PNEUMONIA [None]
  - URINARY TRACT INFECTION [None]
